FAERS Safety Report 10253874 (Version 1)
Quarter: 2014Q2

REPORT INFORMATION
  Report Type: Spontaneous
  Country: CH (occurrence: CH)
  Receive Date: 20140623
  Receipt Date: 20140623
  Transmission Date: 20141212
  Serious: Yes (Other)
  Sender: FDA-Public Use
  Company Number: CH-ABBVIE-14P-151-1248155-00

PATIENT
  Age: 65 Year
  Sex: Female
  Weight: 69 kg

DRUGS (4)
  1. HUMIRA [Suspect]
     Indication: ANKYLOSING SPONDYLITIS
     Route: 058
     Dates: start: 20140207, end: 20140428
  2. ESOMEP [Concomitant]
     Indication: PRODUCT USED FOR UNKNOWN INDICATION
     Route: 048
  3. SIMVASIN SPIRIG [Concomitant]
     Indication: DYSLIPIDAEMIA
     Route: 048
  4. ELTROXIN [Concomitant]
     Indication: HYPOTHYROIDISM
     Route: 048

REACTIONS (8)
  - Bronchoalveolar lavage abnormal [Recovered/Resolved]
  - Cough [Recovered/Resolved]
  - Bronchitis chronic [Recovered/Resolved]
  - Body temperature increased [Recovered/Resolved]
  - Nasopharyngitis [Recovered/Resolved]
  - Nasal congestion [Recovered/Resolved]
  - Lymphocytosis [Recovered/Resolved]
  - Back pain [Unknown]
